FAERS Safety Report 9665231 (Version 2)
Quarter: 2013Q4

REPORT INFORMATION
  Report Type: Spontaneous
  Country: GB (occurrence: GB)
  Receive Date: 20131101
  Receipt Date: 20131101
  Transmission Date: 20140711
  Serious: Yes (Other)
  Sender: FDA-Public Use
  Company Number: GB-WATSON-2012-20877

PATIENT
  Age: 79 Year
  Sex: Male

DRUGS (12)
  1. METFORMIN (UNKNOWN) [Suspect]
     Indication: DIABETES MELLITUS
     Dosage: EVERY MORNINIG AND EVERYNIGHT DOSE: 6 IN TOTAL
     Route: 065
  2. LANTUS [Suspect]
     Indication: TYPE 2 DIABETES MELLITUS
     Dosage: 17 UT, QAM
     Route: 065
  3. GLICLAZIDE [Concomitant]
     Indication: DIABETES MELLITUS
     Dosage: 2 DF, DAILY, STRENTH 80 MG
     Route: 065
  4. AMLODIPINE [Concomitant]
     Indication: PRODUCT USED FOR UNKNOWN INDICATION
     Dosage: 5 MG, UNKNOWN
     Route: 065
  5. RAMIPRIL [Concomitant]
     Indication: PRODUCT USED FOR UNKNOWN INDICATION
     Dosage: 5 MG, UNKNOWN
     Route: 065
  6. TRITACE [Concomitant]
     Indication: PRODUCT USED FOR UNKNOWN INDICATION
     Dosage: 10 MG, UNKNOWN
     Route: 048
  7. BRILIQUE [Concomitant]
     Indication: PRODUCT USED FOR UNKNOWN INDICATION
     Dosage: 90 MG, UNKNOWN
     Route: 065
  8. BISOPROLOL [Concomitant]
     Indication: CARDIAC DISORDER
     Dosage: UNK
     Route: 065
  9. ZYDOL                              /00599202/ [Concomitant]
     Indication: PRODUCT USED FOR UNKNOWN INDICATION
     Dosage: 50 MG, UNKNOWN
     Route: 065
  10. PARACETAMOL [Concomitant]
     Dosage: STRENGTH: 500 MG?FORM: CAPLETS
  11. OMEPRAZOLE [Concomitant]
     Dosage: STRENGTH: 40 MG
     Route: 048
  12. ASPIRIN [Concomitant]
     Dosage: STRENGTH: 75 MG?DISPERSIBLE

REACTIONS (1)
  - Dyspnoea [Not Recovered/Not Resolved]
